FAERS Safety Report 13648545 (Version 1)
Quarter: 2017Q2

REPORT INFORMATION
  Report Type: Spontaneous
  Country: FR (occurrence: FR)
  Receive Date: 20170613
  Receipt Date: 20170613
  Transmission Date: 20170830
  Serious: Yes (Other)
  Sender: FDA-Public Use
  Company Number: FR-BAYER-2017-110709

PATIENT
  Age: 38 Year
  Sex: Female

DRUGS (1)
  1. MIRENA [Suspect]
     Active Substance: LEVONORGESTREL
     Indication: CONTRACEPTION
     Dosage: 20 MCG/24HR, CONT
     Route: 015

REACTIONS (8)
  - Muscle spasms [Unknown]
  - Depression [Unknown]
  - Breast mass [Unknown]
  - Crying [Unknown]
  - Weight increased [Unknown]
  - Headache [Unknown]
  - Fungal infection [Unknown]
  - Libido decreased [Unknown]
